FAERS Safety Report 5394466-0 (Version None)
Quarter: 2007Q3

REPORT INFORMATION
  Report Type: 
  Country: None (occurrence: None)
  Receive Date: 20070723
  Receipt Date: 20070516
  Transmission Date: 20080115
  Serious: No
  Sender: FDA-Public Use
  Company Number: US-AMGEN-US225045

PATIENT
  Sex: Male

DRUGS (1)
  1. VECTIBIX [Suspect]
     Indication: COLORECTAL CANCER
     Dates: start: 20061001

REACTIONS (4)
  - BLISTER [None]
  - DRY SKIN [None]
  - SKIN EXFOLIATION [None]
  - SKIN HAEMORRHAGE [None]
